FAERS Safety Report 6469816-4 (Version None)
Quarter: 2009Q4

REPORT INFORMATION
  Report Type: 
  Country: None (occurrence: None)
  Receive Date: 20091203
  Receipt Date: 20080109
  Transmission Date: 20100525
  Serious: Yes (Hospitalization)
  Sender: FDA-Public Use
  Company Number: US-ELI_LILLY_AND_COMPANY-US200712005128

PATIENT
  Age: 37 Year
  Sex: Female
  Weight: 60.317 kg

DRUGS (7)
  1. FORTEO [Suspect]
     Indication: OSTEOPOROSIS
     Dosage: UNK, UNK
     Dates: start: 20071220, end: 20071225
  2. PROPOXYPHENE NAPSYLATE W/ ACETAMINOPHEN [Concomitant]
  3. VOLTAREN                                /SCH/ [Concomitant]
     Dosage: 50 MG, 2/D
  4. AZATHIOPRINE [Concomitant]
     Dosage: 50 MG, 2/D
  5. PLAQUENIL [Concomitant]
     Dosage: 200 MG, 2/D
  6. PREVACID [Concomitant]
  7. LIDODERM [Concomitant]

REACTIONS (1)
  - APPENDICITIS [None]
